FAERS Safety Report 17690216 (Version 1)
Quarter: 2020Q2

REPORT INFORMATION
  Report Type: Spontaneous
  Country: US (occurrence: US)
  Receive Date: 20200421
  Receipt Date: 20200421
  Transmission Date: 20200714
  Serious: Yes (Other)
  Sender: FDA-Public Use
  Company Number: US-SYNEX-T202001828

PATIENT
  Age: 59 Year
  Sex: Female

DRUGS (10)
  1. AZITHROMYCIN ANHYDROUS. [Concomitant]
     Active Substance: AZITHROMYCIN ANHYDROUS
     Indication: MYCOBACTERIAL INFECTION
  2. CEFOXITIN [Concomitant]
     Active Substance: CEFOXITIN SODIUM
     Indication: BRONCHIECTASIS
     Dosage: 6 GRAM, QD
     Route: 042
  3. INOMAX [Suspect]
     Active Substance: NITRIC OXIDE
     Indication: BRONCHIECTASIS
     Dosage: 160 PPM, TID (FOR FIFTY MINUTES, TID FOR FIFTEEN WEEKDAYS) (INHALATION)
     Route: 055
  4. CLOFAZIMINE [Concomitant]
     Active Substance: CLOFAZIMINE
     Indication: BRONCHIECTASIS
     Dosage: UNK
     Route: 065
  5. CLOFAZIMINE [Concomitant]
     Active Substance: CLOFAZIMINE
     Indication: MYCOBACTERIAL INFECTION
  6. AZITHROMYCIN ANHYDROUS. [Concomitant]
     Active Substance: AZITHROMYCIN ANHYDROUS
     Indication: BRONCHIECTASIS
     Dosage: UNK
     Route: 065
  7. CEFOXITIN [Concomitant]
     Active Substance: CEFOXITIN SODIUM
     Indication: MYCOBACTERIAL INFECTION
  8. AMIKACIN. [Concomitant]
     Active Substance: AMIKACIN
     Indication: BRONCHIECTASIS
     Dosage: UNK (INHALATION)
     Route: 055
  9. AMIKACIN. [Concomitant]
     Active Substance: AMIKACIN
     Indication: MYCOBACTERIAL INFECTION
  10. INOMAX [Suspect]
     Active Substance: NITRIC OXIDE
     Indication: MYCOBACTERIAL INFECTION

REACTIONS (1)
  - Atypical mycobacterial infection [Unknown]
